FAERS Safety Report 14836061 (Version 1)
Quarter: 2018Q2

REPORT INFORMATION
  Report Type: Spontaneous
  Country: US (occurrence: US)
  Receive Date: 20180413
  Receipt Date: 20180413
  Transmission Date: 20180711
  Serious: Yes (Disabling)
  Sender: FDA-Public Use
  Company Number: None

PATIENT
  Age: 49 Year
  Sex: Male
  Weight: 119.25 kg

DRUGS (9)
  1. LEVOTHROXIN [Concomitant]
  2. VITAMIN B6 [Concomitant]
     Active Substance: PYRIDOXINE HYDROCHLORIDE
  3. VITAMIN B12 [Concomitant]
     Active Substance: CYANOCOBALAMIN
  4. SULFURSALAZINE [Concomitant]
  5. METHADONE [Concomitant]
     Active Substance: METHADONE HYDROCHLORIDE
  6. OXYCODONE WITH APAP [Concomitant]
     Active Substance: ACETAMINOPHEN\OXYCODONE HYDROCHLORIDE
  7. ISONIZID [Concomitant]
  8. LEVOFLOXACIN. [Suspect]
     Active Substance: LEVOFLOXACIN
     Indication: POST PROCEDURAL INFECTION
     Route: 048
     Dates: start: 20171014, end: 20171024
  9. LYRICA [Concomitant]
     Active Substance: PREGABALIN

REACTIONS (8)
  - Asthenia [None]
  - Arthralgia [None]
  - Arthritis [None]
  - Gastrointestinal pain [None]
  - Inflammation [None]
  - Toxicity to various agents [None]
  - Tendonitis [None]
  - Arthropathy [None]

NARRATIVE: CASE EVENT DATE: 20171025
